FAERS Safety Report 8168172-3 (Version None)
Quarter: 2012Q1

REPORT INFORMATION
  Report Type: 
  Country: None (occurrence: None)
  Receive Date: 20120227
  Receipt Date: 20120220
  Transmission Date: 20120608
  Serious: Yes (Other)
  Sender: FDA-Public Use
  Company Number: PHHY2012JP015343

PATIENT
  Age: 61 Year
  Sex: Female

DRUGS (4)
  1. PHENOBARBITAL TAB [Concomitant]
     Dosage: UNK UKN, UNK
     Route: 048
  2. CLONAZEPAM [Concomitant]
     Dosage: UNK UKN, UNK
     Route: 048
  3. CARBAMAZEPINE [Suspect]
     Dosage: UNK UKN, UNK
  4. PHENYTOIN [Concomitant]
     Dosage: UNK UKN, UNK
     Route: 048

REACTIONS (2)
  - PNEUMONIA [None]
  - HYPOGAMMAGLOBULINAEMIA [None]
